FAERS Safety Report 8889121 (Version 1)
Quarter: 2012Q4

REPORT INFORMATION
  Report Type: 
  Country: US (occurrence: US)
  Receive Date: 20121106
  Receipt Date: 20121106
  Transmission Date: 20130627
  Serious: No
  Sender: FDA-Public Use
  Company Number: US-ASTRAZENECA-2005UW00736

PATIENT
  Age: 58 Year
  Sex: Female

DRUGS (5)
  1. PULMICORT RESPULES [Suspect]
     Indication: ASTHMA
     Route: 055
  2. SYMBICORT PMDI [Suspect]
     Dosage: UNKNOWN FREQUENCY
     Route: 055
  3. ACCOLATE [Concomitant]
  4. XOPENEX [Concomitant]
  5. IPRATROPIUM [Concomitant]

REACTIONS (4)
  - Chest discomfort [Unknown]
  - Adverse event [Unknown]
  - Dyspnoea [Unknown]
  - Drug dose omission [Unknown]
